FAERS Safety Report 5962817-1 (Version None)
Quarter: 2008Q4

REPORT INFORMATION
  Report Type: 
  Country: None (occurrence: None)
  Receive Date: 20081119
  Receipt Date: 20081119
  Transmission Date: 20090506
  Serious: Yes (Hospitalization)
  Sender: FDA-Public Use
  Company Number: None

PATIENT
  Sex: Female
  Weight: 78 kg

DRUGS (8)
  1. PACLITAXEL [Suspect]
     Dosage: 150 MG
     Dates: end: 20081113
  2. HERCEPTIN [Suspect]
     Dosage: 150 MG
     Dates: end: 20081113
  3. ADVAIR HFA [Concomitant]
  4. AMLODIPINE BESYLATE [Concomitant]
  5. ASPIRIN [Concomitant]
  6. HYDROCHLOROTHIAZIDE [Concomitant]
  7. LISINOPRIL [Concomitant]
  8. METFORMIN HCL [Concomitant]

REACTIONS (12)
  - ACUTE CORONARY SYNDROME [None]
  - ACUTE MYOCARDIAL INFARCTION [None]
  - BRAIN NATRIURETIC PEPTIDE INCREASED [None]
  - CARDIAC FAILURE CONGESTIVE [None]
  - CORONARY ARTERY BYPASS [None]
  - CORONARY ARTERY DISEASE [None]
  - PRODUCTIVE COUGH [None]
  - RALES [None]
  - RHONCHI [None]
  - SPUTUM DISCOLOURED [None]
  - TACHYCARDIA [None]
  - TACHYPNOEA [None]
